FAERS Safety Report 9157929 (Version 6)
Quarter: 2014Q4

REPORT INFORMATION
  Report Type: Report from Study
  Country: BE (occurrence: BE)
  Receive Date: 20130312
  Receipt Date: 20141020
  Transmission Date: 20150529
  Serious: Yes (Hospitalization)
  Sender: FDA-Public Use
  Company Number: BE-ROCHE-1199271

PATIENT
  Age: 49 Year
  Sex: Female

DRUGS (45)
  1. PERTUZUMAB [Suspect]
     Active Substance: PERTUZUMAB
     Dosage: LAST DOSE PRIOR TO SAE: 26/FEB/2013
     Route: 042
     Dates: start: 20130226
  2. BUPRENORPHINE HCL [Concomitant]
     Active Substance: BUPRENORPHINE HYDROCHLORIDE
     Route: 065
     Dates: start: 20121120, end: 20131101
  3. WELLBUTRIN [Concomitant]
     Active Substance: BUPROPION HYDROCHLORIDE
     Route: 065
     Dates: start: 20130118
  4. MEDROL [Concomitant]
     Active Substance: METHYLPREDNISOLONE
     Route: 065
     Dates: start: 20120117, end: 20130121
  5. DUPHALAC [Concomitant]
     Active Substance: LACTULOSE
     Route: 065
     Dates: start: 20121125
  6. CACIT (BELGIUM) [Concomitant]
     Dosage: 1000/880 MG DAILY
     Route: 065
     Dates: start: 20120703
  7. MOTILIUM [Concomitant]
     Active Substance: DOMPERIDONE
     Route: 065
     Dates: start: 20130225
  8. CONTRAMAL [Concomitant]
     Active Substance: TRAMADOL HYDROCHLORIDE
     Route: 065
     Dates: start: 20120920, end: 20130330
  9. IMODIUM [Concomitant]
     Active Substance: LOPERAMIDE HYDROCHLORIDE
     Route: 065
     Dates: start: 20130210
  10. FENISTIL (BELGIUM) [Concomitant]
     Route: 065
     Dates: start: 20130205, end: 20130604
  11. OMEPRAZOLE. [Concomitant]
     Active Substance: OMEPRAZOLE
     Route: 065
     Dates: start: 20130118
  12. FUCIDIN CREAM [Concomitant]
     Dosage: 1 APPLICATION PRN
     Route: 065
     Dates: start: 201406
  13. BETNELAN [Concomitant]
     Route: 065
     Dates: start: 20140422
  14. STAPHYCID (BELGIUM) [Concomitant]
     Route: 065
     Dates: start: 20140324, end: 20140328
  15. PERTUZUMAB [Suspect]
     Active Substance: PERTUZUMAB
     Indication: HER-2 POSITIVE BREAST CANCER
     Route: 042
     Dates: start: 20130204, end: 20130204
  16. XGEVA [Concomitant]
     Active Substance: DENOSUMAB
     Route: 065
     Dates: start: 20120703
  17. DERMOVATE CREAM [Concomitant]
     Route: 065
     Dates: start: 20131102, end: 20131104
  18. DAFALGAN [Concomitant]
     Active Substance: ACETAMINOPHEN
     Route: 065
     Dates: start: 20130204, end: 20130304
  19. OXYNORM [Concomitant]
     Active Substance: OXYCODONE HYDROCHLORIDE
     Route: 065
     Dates: start: 20120920, end: 20140513
  20. CLAVUCID [Concomitant]
     Route: 065
     Dates: start: 20140129, end: 20140202
  21. CLAVUCID [Concomitant]
     Route: 065
     Dates: start: 20140502, end: 20140513
  22. CHLORAMINE [Concomitant]
     Route: 065
     Dates: start: 20140129
  23. VOLTAREN [Concomitant]
     Active Substance: DICLOFENAC SODIUM
     Route: 065
     Dates: start: 20120901
  24. TRASTUZUMAB [Suspect]
     Active Substance: TRASTUZUMAB
     Indication: HER-2 POSITIVE BREAST CANCER
     Route: 042
     Dates: start: 20130205, end: 20130205
  25. TRASTUZUMAB [Suspect]
     Active Substance: TRASTUZUMAB
     Dosage: LAST DOSE PRIOR TO SAE: 26/FEB/2013 (6 MG/KG AS PER PROTOCOL)
     Route: 042
     Dates: start: 20130226
  26. TAXOL [Suspect]
     Active Substance: PACLITAXEL
     Indication: HER-2 POSITIVE BREAST CANCER
     Dosage: LAST DOSE PRIOR TO SAE: 26/FEB/2013. DOSE INTERRUPTED DUE TO SAE.
     Route: 042
     Dates: start: 20130205, end: 20130305
  27. BRONCHOSEDAL (CODEINE PHOSPHATE) [Concomitant]
     Route: 065
     Dates: start: 20120126, end: 20130204
  28. XGEVA [Concomitant]
     Active Substance: DENOSUMAB
     Route: 065
     Dates: start: 20130212, end: 20130212
  29. SOLU-MEDROL [Concomitant]
     Active Substance: METHYLPREDNISOLONE SODIUM SUCCINATE
     Route: 065
     Dates: start: 20130409, end: 20130409
  30. STAPHYCID (BELGIUM) [Concomitant]
     Route: 065
     Dates: start: 20140607, end: 20140617
  31. TAXOL [Suspect]
     Active Substance: PACLITAXEL
     Route: 042
     Dates: start: 20130312
  32. XANAX [Concomitant]
     Active Substance: ALPRAZOLAM
     Route: 065
     Dates: start: 20130204
  33. CITALOPRAM [Concomitant]
     Active Substance: CITALOPRAM HYDROBROMIDE
     Route: 065
     Dates: start: 20130126
  34. ZOLADEX [Concomitant]
     Active Substance: GOSERELIN ACETATE
     Route: 065
     Dates: start: 20120703, end: 20130115
  35. PARACETAMOL [Concomitant]
     Active Substance: ACETAMINOPHEN
     Route: 065
     Dates: start: 20130204, end: 20130205
  36. DEXAMETHASONE. [Concomitant]
     Active Substance: DEXAMETHASONE
     Route: 065
     Dates: start: 20130204, end: 20130604
  37. TARIVID [Concomitant]
     Active Substance: OFLOXACIN
     Route: 065
     Dates: start: 20131215, end: 20140106
  38. FENTANYL. [Concomitant]
     Active Substance: FENTANYL
     Route: 065
     Dates: start: 20131102
  39. FUCIDIN CREAM [Concomitant]
     Route: 065
     Dates: start: 20140129, end: 20140414
  40. BETNELAN [Concomitant]
     Dosage: 1 APPLICATION
     Route: 065
     Dates: start: 20140804
  41. DICLOFENAC [Concomitant]
     Active Substance: DICLOFENAC
     Route: 065
     Dates: start: 20120901
  42. CIPRAMIL [Concomitant]
     Active Substance: CITALOPRAM HYDROBROMIDE
     Route: 065
     Dates: start: 20130126
  43. DAFALGAN [Concomitant]
     Active Substance: ACETAMINOPHEN
     Route: 065
     Dates: start: 20120901
  44. PARACETAMOL [Concomitant]
     Active Substance: ACETAMINOPHEN
     Route: 065
     Dates: start: 20130304
  45. MOTILIUM [Concomitant]
     Active Substance: DOMPERIDONE
     Route: 065
     Dates: start: 20140225

REACTIONS (1)
  - Dehydration [Recovered/Resolved]

NARRATIVE: CASE EVENT DATE: 20130305
